FAERS Safety Report 22592809 (Version 1)
Quarter: 2023Q2

REPORT INFORMATION
  Report Type: Spontaneous
  Country: US (occurrence: US)
  Receive Date: 20230613
  Receipt Date: 20230613
  Transmission Date: 20230722
  Serious: Yes (Death, Hospitalization)
  Sender: FDA-Public Use
  Company Number: US-TEVA-2023-US-2896005

PATIENT
  Age: 88 Year
  Sex: Male

DRUGS (1)
  1. PROPOFOL [Suspect]
     Active Substance: PROPOFOL
     Indication: Anaesthesia
     Route: 065

REACTIONS (4)
  - Acute hepatic failure [Fatal]
  - Mental status changes [Not Recovered/Not Resolved]
  - Metabolic acidosis [Unknown]
  - Haemodynamic instability [Recovered/Resolved]
